FAERS Safety Report 6016071-5 (Version None)
Quarter: 2008Q4

REPORT INFORMATION
  Report Type: 
  Country: None (occurrence: None)
  Receive Date: 20081222
  Receipt Date: 20081217
  Transmission Date: 20090506
  Serious: Yes (Other)
  Sender: FDA-Public Use
  Company Number: US-MERCK-0812USA03711

PATIENT
  Age: 56 Year
  Sex: Male
  Weight: 107 kg

DRUGS (7)
  1. JANUVIA [Suspect]
     Indication: DIABETES MELLITUS
     Route: 048
     Dates: start: 20081201, end: 20081204
  2. PAXIL [Concomitant]
     Indication: TYPE 2 DIABETES MELLITUS
     Route: 065
  3. ALLEGRA D 24 HOUR [Concomitant]
     Route: 065
  4. GLIMEPIRIDE AND PIOGLITAZONE HYDROCHLORIDE [Concomitant]
     Indication: TYPE 2 DIABETES MELLITUS
     Route: 065
     Dates: start: 20080912
  5. CADUET [Concomitant]
     Route: 065
  6. GLUCOPHAGE [Concomitant]
     Route: 065
     Dates: start: 20080725
  7. PROVIGIL [Concomitant]
     Route: 065
     Dates: start: 20081201

REACTIONS (2)
  - FACE OEDEMA [None]
  - URTICARIA [None]
